FAERS Safety Report 8917808 (Version 1)
Quarter: 2012Q4

REPORT INFORMATION
  Report Type: Report from Study
  Country: IN (occurrence: IN)
  Receive Date: 20121120
  Receipt Date: 20121120
  Transmission Date: 20130627
  Serious: Yes (Death)
  Sender: FDA-Public Use
  Company Number: IN-B.I. PHARMACEUTICALS,INC./RIDGEFIELD-2012-BP-25252BP

PATIENT
  Age: 58 Year
  Sex: Female
  Weight: 43 kg

DRUGS (11)
  1. BI 10773 [Suspect]
     Indication: TYPE 2 DIABETES MELLITUS
     Route: 048
     Dates: start: 20111205, end: 20120912
  2. ASPIRIN [Concomitant]
     Indication: CORONARY ARTERY DISEASE
     Dosage: 150 mg
     Route: 048
     Dates: start: 20111029
  3. CLOPIDOGREL [Concomitant]
     Indication: CORONARY ARTERY DISEASE
     Dosage: 75 mg
     Route: 048
     Dates: start: 20111029
  4. ROSUVAS [Concomitant]
     Indication: CORONARY ARTERY DISEASE
     Dosage: 20 mg
     Route: 048
     Dates: start: 20111029
  5. FRUSELAC [Concomitant]
     Indication: CORONARY ARTERY DISEASE
     Dosage: 25 mg
     Route: 048
     Dates: start: 20111029
  6. PACITANE [Concomitant]
     Indication: DYSKINESIA
     Dosage: 4 mg
     Route: 048
     Dates: start: 20120529
  7. SERENACE [Concomitant]
     Indication: DYSKINESIA
     Dosage: 10 mg
     Route: 048
     Dates: start: 20120629
  8. LONAZEP [Concomitant]
     Indication: DYSKINESIA
     Dosage: 0.5 mg
     Route: 048
     Dates: start: 20110909
  9. GLARITUS [Concomitant]
     Indication: DIABETES MELLITUS
     Dosage: 15 U
     Route: 058
     Dates: start: 201110
  10. LACTIFIBER [Concomitant]
     Indication: CONSTIPATION
     Route: 048
     Dates: start: 20120629
  11. CONCOR [Concomitant]
     Indication: HYPERTENSION
     Dosage: 2.5 mg
     Route: 048
     Dates: start: 20120120

REACTIONS (1)
  - Paraplegia [Fatal]
